FAERS Safety Report 18113052 (Version 1)
Quarter: 2020Q3

REPORT INFORMATION
  Report Type: Spontaneous
  Country: BY (occurrence: BY)
  Receive Date: 20200805
  Receipt Date: 20200805
  Transmission Date: 20201103
  Serious: Yes (Death, Other)
  Sender: FDA-Public Use
  Company Number: BY-JNJFOC-20200800661

PATIENT
  Age: 59 Year
  Sex: Male
  Weight: 76 kg

DRUGS (14)
  1. DELAMANID [Suspect]
     Active Substance: DELAMANID
     Indication: TUBERCULOSIS
     Route: 048
     Dates: start: 20200319, end: 20200512
  2. CLOFAZIMINE [Suspect]
     Active Substance: CLOFAZIMINE
     Indication: TUBERCULOSIS
     Route: 048
     Dates: start: 20200319, end: 20200512
  3. LISINOPRIL. [Concomitant]
     Active Substance: LISINOPRIL
     Dosage: 50
     Route: 048
     Dates: start: 20200529, end: 20200621
  4. PYRIDOXINE [Concomitant]
     Active Substance: PYRIDOXINE
     Dosage: 50
     Route: 048
     Dates: start: 20200319, end: 20200621
  5. ATORVASTATIN [Concomitant]
     Active Substance: ATORVASTATIN
     Dosage: 20
     Route: 048
     Dates: start: 20200601, end: 20200621
  6. PHENIBUT [Concomitant]
     Active Substance: 4-AMINO-3-PHENYLBUTYRIC ACID
     Route: 048
     Dates: start: 20200603, end: 20200621
  7. ZOPICLONE [Concomitant]
     Active Substance: ZOPICLONE
     Dosage: 7.5
     Route: 048
     Dates: start: 20200528, end: 20200621
  8. METOPROLOL. [Concomitant]
     Active Substance: METOPROLOL
     Dosage: 50
     Route: 048
     Dates: start: 20200601, end: 20200621
  9. FRAGMIN [Concomitant]
     Active Substance: DALTEPARIN SODIUM
     Route: 048
     Dates: start: 20200611, end: 20200621
  10. CITICOLINE [Concomitant]
     Active Substance: CITICOLINE
     Dosage: 500
     Route: 048
     Dates: start: 20200611, end: 20200621
  11. SIRTURO [Suspect]
     Active Substance: BEDAQUILINE FUMARATE
     Indication: TUBERCULOSIS
     Route: 048
     Dates: start: 20200319, end: 20200512
  12. LINEZOLID. [Suspect]
     Active Substance: LINEZOLID
     Indication: TUBERCULOSIS
     Route: 048
     Dates: start: 20200319, end: 20200512
  13. PRONIL                             /00724402/ [Concomitant]
     Route: 042
     Dates: start: 20200529, end: 20200621
  14. NIFEDIPINE. [Concomitant]
     Active Substance: NIFEDIPINE
     Route: 048
     Dates: start: 20200611, end: 20200621

REACTIONS (1)
  - Cerebrovascular insufficiency [Fatal]

NARRATIVE: CASE EVENT DATE: 20200512
